FAERS Safety Report 17178716 (Version 1)
Quarter: 2019Q4

REPORT INFORMATION
  Report Type: Spontaneous
  Country: DE (occurrence: DE)
  Receive Date: 20191219
  Receipt Date: 20191219
  Transmission Date: 20200122
  Serious: Yes (Other)
  Sender: FDA-Public Use
  Company Number: DE-PFIZER INC-2019545240

PATIENT
  Age: 61 Year
  Sex: Female

DRUGS (8)
  1. XELJANZ [Suspect]
     Active Substance: TOFACITINIB CITRATE
     Indication: RHEUMATOID ARTHRITIS
     Dosage: 5 MG, 2X/DAY
     Dates: start: 201711, end: 20190923
  2. PREDNISOLON [PREDNISOLONE] [Concomitant]
     Active Substance: PREDNISOLONE
     Dosage: TAKE ONE DAY AFTER TAKING METHOTREXATE
  3. ARCOXIA [Concomitant]
     Active Substance: ETORICOXIB
     Dosage: UNK UNK, AS NEEDED
  4. FOLSAEURE [Concomitant]
     Active Substance: FOLIC ACID
     Dosage: 10 MG, DAILY
  5. METHOTREXATE. [Concomitant]
     Active Substance: METHOTREXATE
     Indication: RHEUMATOID ARTHRITIS
     Dosage: 17.5 MG, WEEKLY
     Route: 058
     Dates: start: 201711
  6. VIGANTOLETTEN [Concomitant]
     Active Substance: CHOLECALCIFEROL
     Dosage: 1 DF, 1X/DAY
  7. VITAMIN B12 [Concomitant]
     Active Substance: CYANOCOBALAMIN
     Dosage: UNK UNK, AS NEEDED
  8. GYNOKADIN [ESTRADIOL] [Concomitant]
     Active Substance: ESTRADIOL
     Dates: end: 201908

REACTIONS (3)
  - Visual impairment [Unknown]
  - Macular oedema [Unknown]
  - Ophthalmic vein thrombosis [Unknown]

NARRATIVE: CASE EVENT DATE: 20190716
